FAERS Safety Report 5217061-2 (Version None)
Quarter: 2007Q1

REPORT INFORMATION
  Report Type: 
  Country: None (occurrence: None)
  Receive Date: 20070124
  Receipt Date: 20070117
  Transmission Date: 20070707
  Serious: Yes (Disabling)
  Sender: FDA-Public Use
  Company Number: RO-ROCHE-478918

PATIENT
  Age: 73 Year
  Sex: Female

DRUGS (5)
  1. BONVIVA [Suspect]
     Route: 048
     Dates: start: 20061215, end: 20070115
  2. EUTHYROX [Concomitant]
     Route: 048
  3. ALPHA D3 [Concomitant]
     Route: 048
  4. TICLID [Concomitant]
     Route: 048
     Dates: start: 19850615
  5. ZOCOR [Concomitant]
     Dosage: DRUG NAME REPORTED AS ZOCOR (ZEPLAN)
     Route: 048
     Dates: start: 20010615

REACTIONS (5)
  - ARTHRALGIA [None]
  - DIARRHOEA [None]
  - GAIT DISTURBANCE [None]
  - OEDEMA PERIPHERAL [None]
  - PAIN IN EXTREMITY [None]
